FAERS Safety Report 13632625 (Version 2)
Quarter: 2017Q4

REPORT INFORMATION
  Report Type: Report from Study
  Country: None (occurrence: US)
  Receive Date: 20170608
  Receipt Date: 20171029
  Transmission Date: 20180320
  Serious: Yes (Other)
  Sender: FDA-Public Use
  Company Number: US-ABBVIE-17K-163-1998470-00

PATIENT
  Age: 52 Year
  Sex: Male
  Weight: 106.69 kg

DRUGS (4)
  1. HUMIRA [Suspect]
     Active Substance: ADALIMUMAB
     Route: 058
     Dates: start: 20170503
  2. HUMIRA [Suspect]
     Active Substance: ADALIMUMAB
     Indication: PSORIASIS
     Route: 058
     Dates: start: 2016
  3. DICLOFENAC [Concomitant]
     Active Substance: DICLOFENAC
     Indication: PRODUCT USED FOR UNKNOWN INDICATION
  4. HUMIRA [Suspect]
     Active Substance: ADALIMUMAB
     Indication: PSORIATIC ARTHROPATHY
     Route: 058
     Dates: start: 2015, end: 2015

REACTIONS (18)
  - Exostosis [Unknown]
  - Discomfort [Unknown]
  - Hepatitis C [Unknown]
  - Anxiety [Not Recovered/Not Resolved]
  - Intervertebral disc degeneration [Unknown]
  - Muscular weakness [Recovering/Resolving]
  - Arthralgia [Unknown]
  - Neuralgia [Unknown]
  - Muscle necrosis [Unknown]
  - Gait disturbance [Recovering/Resolving]
  - Chondropathy [Unknown]
  - Cartilage atrophy [Not Recovered/Not Resolved]
  - Muscle spasms [Recovering/Resolving]
  - Intervertebral disc protrusion [Unknown]
  - Nerve compression [Unknown]
  - Pollakiuria [Recovering/Resolving]
  - Gait inability [Unknown]
  - Intervertebral disc displacement [Unknown]

NARRATIVE: CASE EVENT DATE: 2015
